FAERS Safety Report 8773656 (Version 1)
Quarter: 2012Q4

REPORT INFORMATION
  Report Type: 
  Country: US (occurrence: US)
  Receive Date: 20120907
  Receipt Date: 20120907
  Transmission Date: 20130627
  Serious: Yes (Other)
  Sender: FDA-Public Use
  Company Number: PHEH2012US016850

PATIENT

DRUGS (2)
  1. SANDOSTATIN (OCTREOTIDE ACETATE) [Suspect]
  2. SANDOSTATIN LAR [Suspect]

REACTIONS (2)
  - Cerebrovascular disorder [Unknown]
  - Headache [Unknown]
